FAERS Safety Report 25465245 (Version 3)
Quarter: 2025Q4

REPORT INFORMATION
  Report Type: Report from Study
  Country: EU (occurrence: EU)
  Receive Date: 20250622
  Receipt Date: 20251229
  Transmission Date: 20260117
  Serious: Yes (Other)
  Sender: ABBVIE
  Company Number: EU-ABBVIE-6337289

PATIENT
  Age: 82 Year
  Sex: Female
  Weight: 53 kg

DRUGS (12)
  1. FOSCARBIDOPA\FOSLEVODOPA [Suspect]
     Active Substance: FOSCARBIDOPA\FOSLEVODOPA
     Indication: Parkinson^s disease
     Dosage: DURATION OF THE DAILY INFUSION : 24 HRS?BASE FLOW 0.65 ML/H DURATION 16. HOURS MORNING, AFTERNOON...
     Route: 058
     Dates: start: 20241129, end: 202412
  2. FOSCARBIDOPA\FOSLEVODOPA [Suspect]
     Active Substance: FOSCARBIDOPA\FOSLEVODOPA
     Dosage: DOSAGE ADJUSTMENT?DURATION OF DAILY PERFUSION: 24 HRS?BASE FLOW 0.75 ML/H DURATION 16. HOURS-MORN...
     Route: 058
     Dates: start: 20241226, end: 20250211
  3. FOSCARBIDOPA\FOSLEVODOPA [Suspect]
     Active Substance: FOSCARBIDOPA\FOSLEVODOPA
     Dosage: DOSAGE ADJUSTMENT?DURATION OF DAILY PERFUSION: 24 HRS?BASE FLOW 0.85 ML/H DURATION 16. HOURS-MORN...
     Route: 058
     Dates: start: 20250211, end: 20250328
  4. FOSCARBIDOPA\FOSLEVODOPA [Suspect]
     Active Substance: FOSCARBIDOPA\FOSLEVODOPA
     Dosage: DOSAGE ADJUSTMENT?DURATION OF DAILY PERFUSION: 24 HRS?BASE FLOW 0.80 ML/H DURATION 16. HOURS-MORN...
     Route: 058
     Dates: start: 20250328, end: 20250922
  5. FOSCARBIDOPA\FOSLEVODOPA [Suspect]
     Active Substance: FOSCARBIDOPA\FOSLEVODOPA
     Dosage: DOSAGE ADJUSTMENT?DURATION OF DAILY PERFUSION: LESS THAN 24 HRS?BASE FLOW 0.82 ML/H DURATION 16. ...
     Route: 058
     Dates: start: 20250922, end: 20251206
  6. FOSCARBIDOPA\FOSLEVODOPA [Suspect]
     Active Substance: FOSCARBIDOPA\FOSLEVODOPA
     Dosage: DOSAGE ADJUSTMENT?DURATION OF DAILY PERFUSION: 24 HRS?BASE FLOW 0.80 ML/H DURATION 16. HOURS-MORN...
     Route: 058
     Dates: start: 20251206
  7. BENSERAZIDE\LEVODOPA [Concomitant]
     Active Substance: BENSERAZIDE\LEVODOPA
     Indication: Parkinson^s disease
     Dates: start: 2017, end: 20241129
  8. APOMORPHINE [Concomitant]
     Active Substance: APOMORPHINE
     Indication: Parkinson^s disease
     Dates: start: 20220429, end: 20241129
  9. PRAMIPEXOLE [Concomitant]
     Active Substance: PRAMIPEXOLE
     Indication: Parkinson^s disease
     Dates: start: 20250328
  10. LEVOTHYROXINE [Concomitant]
     Active Substance: LEVOTHYROXINE
     Indication: Product used for unknown indication
  11. ESOMEPRAZOLE [Concomitant]
     Active Substance: ESOMEPRAZOLE
     Indication: Product used for unknown indication
  12. SOTALOL [Concomitant]
     Active Substance: SOTALOL
     Indication: Product used for unknown indication
     Dates: start: 20250922

REACTIONS (1)
  - Fall [Not Recovered/Not Resolved]

NARRATIVE: CASE EVENT DATE: 20250401
